FAERS Safety Report 19680100 (Version 2)
Quarter: 2021Q3

REPORT INFORMATION
  Report Type: Spontaneous
  Country: IT (occurrence: IT)
  Receive Date: 20210810
  Receipt Date: 20210816
  Transmission Date: 20211014
  Serious: Yes (Other)
  Sender: FDA-Public Use
  Company Number: IT-GILEAD-2021-0543535

PATIENT
  Age: 35 Year
  Sex: Male

DRUGS (8)
  1. INHIXA [Concomitant]
     Active Substance: ENOXAPARIN SODIUM
  2. FLUIMUCIL [Concomitant]
     Active Substance: ACETYLCYSTEINE
  3. URBASON SOLUB [Concomitant]
     Active Substance: METHYLPREDNISOLONE SODIUM SUCCINATE
  4. LASIX [Concomitant]
     Active Substance: FUROSEMIDE
  5. PANTOPRAZOLE [Concomitant]
     Active Substance: PANTOPRAZOLE
  6. TAZOCIN [Concomitant]
     Active Substance: PIPERACILLIN SODIUM\TAZOBACTAM SODIUM
  7. PARACODINA [DIHYDROCODEINE BITARTRATE] [Concomitant]
     Active Substance: DIHYDROCODEINE BITARTRATE
  8. VEKLURY [Suspect]
     Active Substance: REMDESIVIR
     Indication: COVID-19
     Dosage: 1 DOSAGE FORM, QD
     Route: 042
     Dates: start: 20210702, end: 20210703

REACTIONS (1)
  - Bradycardia [Recovering/Resolving]

NARRATIVE: CASE EVENT DATE: 20210703
